FAERS Safety Report 6607602-2 (Version None)
Quarter: 2010Q1

REPORT INFORMATION
  Report Type: 
  Country: None (occurrence: None)
  Receive Date: 20100301
  Receipt Date: 20100219
  Transmission Date: 20100710
  Serious: Yes (Hospitalization)
  Sender: FDA-Public Use
  Company Number: US-JNJFOC-20091003669

PATIENT
  Sex: Male
  Weight: 128.37 kg

DRUGS (6)
  1. REMICADE [Suspect]
     Indication: CROHN'S DISEASE
     Route: 042
     Dates: start: 20050101
  2. REMICADE [Suspect]
     Route: 042
     Dates: start: 20050101
  3. REMICADE [Suspect]
     Route: 042
     Dates: start: 20050101
  4. AZATHIOPRINE [Concomitant]
     Indication: CROHN'S DISEASE
  5. ASACOL [Concomitant]
     Indication: CROHN'S DISEASE
  6. PREDNISONE [Concomitant]
     Indication: CROHN'S DISEASE

REACTIONS (4)
  - DRUG INEFFECTIVE [None]
  - DYSPNOEA [None]
  - HOSPITALISATION [None]
  - INFUSION RELATED REACTION [None]
